FAERS Safety Report 10558584 (Version 1)
Quarter: 2014Q4

REPORT INFORMATION
  Report Type: Spontaneous
  Country: US (occurrence: US)
  Receive Date: 20141031
  Receipt Date: 20141031
  Transmission Date: 20150529
  Serious: No
  Sender: FDA-Public Use
  Company Number: US-009507513-1410USA016637

PATIENT

DRUGS (2)
  1. FOSAMAX [Suspect]
     Active Substance: ALENDRONATE SODIUM
     Indication: OSTEOPENIA
     Route: 048
  2. BONIVA [Suspect]
     Active Substance: IBANDRONATE SODIUM
     Indication: OSTEOPENIA

REACTIONS (8)
  - Dyspepsia [Unknown]
  - Chest pain [Unknown]
  - Myalgia [Unknown]
  - Drug ineffective [Unknown]
  - Dysphagia [Unknown]
  - Bone loss [Unknown]
  - Lower limb fracture [Unknown]
  - Oropharyngeal pain [Unknown]
